FAERS Safety Report 6744392-7 (Version None)
Quarter: 2010Q2

REPORT INFORMATION
  Report Type: 
  Country: None (occurrence: None)
  Receive Date: 20100527
  Receipt Date: 20100518
  Transmission Date: 20101027
  Serious: Yes (Other)
  Sender: FDA-Public Use
  Company Number: US-PFIZER INC-2010063253

PATIENT
  Sex: Female
  Weight: 55.79 kg

DRUGS (1)
  1. PROVERA [Suspect]
     Indication: OLIGOMENORRHOEA
     Dosage: 5 MG
     Dates: start: 20090207, end: 20090301

REACTIONS (1)
  - UTERINE HAEMORRHAGE [None]
